FAERS Safety Report 17349077 (Version 2)
Quarter: 2020Q1

REPORT INFORMATION
  Report Type: Spontaneous
  Country: PL (occurrence: PL)
  Receive Date: 20200130
  Receipt Date: 20200204
  Transmission Date: 20200409
  Serious: Yes (Death, Life-Threatening, Hospitalization, Other)
  Sender: FDA-Public Use
  Company Number: PL-PFIZER INC-2020036537

PATIENT
  Age: 58 Year
  Sex: Female

DRUGS (11)
  1. METHYLPREDNISOLONE. [Suspect]
     Active Substance: METHYLPREDNISOLONE
     Indication: APLASTIC ANAEMIA
  2. CYTARABINE. [Suspect]
     Active Substance: CYTARABINE
     Indication: ACUTE MYELOID LEUKAEMIA
     Dosage: UNK, CYCLIC (2 CYCLICAL)
     Dates: start: 2015
  3. CLADRIBINE. [Suspect]
     Active Substance: CLADRIBINE
     Dosage: UNK, CYCLIC 2 (CYCLICAL)
     Dates: start: 2015
  4. METHYLPREDNISOLONE. [Suspect]
     Active Substance: METHYLPREDNISOLONE
     Indication: PANCYTOPENIA
  5. CYTARABINE. [Suspect]
     Active Substance: CYTARABINE
     Dosage: UNK, CYCLIC (CYCLICAL)
     Dates: start: 201504
  6. CLADRIBINE. [Suspect]
     Active Substance: CLADRIBINE
     Indication: ACUTE MYELOID LEUKAEMIA
     Dosage: UNK, CYCLIC (CYCLICAL)
     Dates: start: 201504
  7. GRANULOCYTE COLONY STIMULATING FACTOR [Suspect]
     Active Substance: GRANULOCYTE COLONY-STIMULATING FACTOR NOS
     Indication: ACUTE MYELOID LEUKAEMIA
     Dosage: UNK, CYCLIC 2 (CYCLICAL)
     Dates: start: 2015
  8. DAUNORUBICIN [Suspect]
     Active Substance: DAUNORUBICIN
     Indication: ACUTE MYELOID LEUKAEMIA
     Dosage: UNK, CYCLIC (CYCLICAL)
     Dates: start: 201504
  9. METHYLPREDNISOLONE. [Suspect]
     Active Substance: METHYLPREDNISOLONE
     Indication: IMMUNOSUPPRESSANT DRUG THERAPY
     Dosage: UNK (LOW DOSE)
     Route: 048
     Dates: start: 2015
  10. MITOXANTRONE [Suspect]
     Active Substance: MITOXANTRONE HYDROCHLORIDE
     Indication: ACUTE MYELOID LEUKAEMIA
     Dosage: UNK, CYCLIC 2 (CYCLICAL)
     Dates: start: 2015
  11. POSACONAZOLE [Concomitant]
     Active Substance: POSACONAZOLE
     Indication: ANTIFUNGAL PROPHYLAXIS
     Dosage: UNK
     Dates: start: 2015

REACTIONS (20)
  - Sepsis [Fatal]
  - Transaminases increased [Unknown]
  - General physical health deterioration [Unknown]
  - Escherichia infection [Fatal]
  - Aplastic anaemia [Unknown]
  - Mucormycosis [Fatal]
  - Skin necrosis [Unknown]
  - Loss of consciousness [Unknown]
  - Tachycardia [Unknown]
  - Pleural effusion [Unknown]
  - Dehydration [Unknown]
  - Ketoacidosis [Unknown]
  - Decreased appetite [Unknown]
  - Splenomegaly [Unknown]
  - Agranulocytosis [Unknown]
  - Disturbance in attention [Unknown]
  - Eschar [Unknown]
  - Candida infection [Unknown]
  - Haematoma [Unknown]
  - Hyperglycaemia [Unknown]

NARRATIVE: CASE EVENT DATE: 2015
